FAERS Safety Report 15952094 (Version 1)
Quarter: 2019Q1

REPORT INFORMATION
  Report Type: Spontaneous
  Country: US (occurrence: US)
  Receive Date: 20190212
  Receipt Date: 20190212
  Transmission Date: 20190417
  Serious: No
  Sender: FDA-Public Use
  Company Number: US-SA-2019SA038885

PATIENT
  Age: 81 Year
  Sex: Female

DRUGS (2)
  1. ALGINIC ACID;ALUMINIUM HYDROXIDE;MAGNESIUM CARBONATE [Suspect]
     Active Substance: ALGINIC ACID\ALUMINUM HYDROXIDE\MAGNESIUM CARBONATE
     Indication: GASTROOESOPHAGEAL REFLUX DISEASE
  2. GAVISCON [Suspect]
     Active Substance: ALUMINUM HYDROXIDE\MAGNESIUM CARBONATE
     Indication: GASTROOESOPHAGEAL REFLUX DISEASE

REACTIONS (1)
  - Drug ineffective [Unknown]
